FAERS Safety Report 8673178 (Version 2)
Quarter: 2012Q4

REPORT INFORMATION
  Report Type: Report from Study
  Country: US (occurrence: US)
  Receive Date: 20120717
  Receipt Date: 20120829
  Transmission Date: 20130627
  Serious: Yes (Death)
  Sender: FDA-Public Use
  Company Number: US-ASTELLAS-2011US006855

PATIENT
  Age: 68 Year
  Sex: Female

DRUGS (1)
  1. ERLOTINIB TABLET [Suspect]
     Indication: PANCREATIC CARCINOMA
     Dosage: 100 mg, UID/QD
     Route: 048
     Dates: start: 20110930

REACTIONS (10)
  - Balance disorder [Unknown]
  - Rhinorrhoea [Unknown]
  - Nasal congestion [Unknown]
  - Fatigue [Unknown]
  - Rash [Unknown]
  - Dizziness [Unknown]
  - Influenza [Unknown]
  - Dehydration [Unknown]
  - Respiratory arrest [Fatal]
  - Malignant neoplasm progression [Fatal]
